FAERS Safety Report 20212457 (Version 2)
Quarter: 2021Q4

REPORT INFORMATION
  Report Type: Spontaneous
  Country: BG (occurrence: BG)
  Receive Date: 20211221
  Receipt Date: 20211228
  Transmission Date: 20220304
  Serious: Yes (Other)
  Sender: FDA-Public Use
  Company Number: BG-MYLANLABS-2021M1093993

PATIENT
  Age: 77 Year
  Sex: Male
  Weight: 70 kg

DRUGS (5)
  1. PROPAFENONE [Suspect]
     Active Substance: PROPAFENONE
     Indication: Arrhythmia
     Dosage: 150 MILLIGRAM, TID (ABOUT 4 YEARS AGO)
     Route: 048
  2. PROPAFENONE [Suspect]
     Active Substance: PROPAFENONE
     Indication: Atrial fibrillation
     Dosage: 150 MILLIGRAM, BID(ABOUT 3 OR 2 YEARS AGO)
     Route: 048
  3. PROPAFENONE [Suspect]
     Active Substance: PROPAFENONE
     Dosage: 75 MILLIGRAM, BID, HALF TABLET TWICE DAILY (ABOUT 10 DAYS AGO)
     Route: 048
  4. NEBIVOLOL [Concomitant]
     Active Substance: NEBIVOLOL
     Indication: Cardiac failure chronic
     Dosage: 2.5 MILLIGRAM QD,  HALF TABLET ONCE DAILY
     Route: 048
  5. TAMSOL [Concomitant]
     Indication: Benign prostatic hyperplasia
     Dosage: 0.5 MILLIGRAM, QD

REACTIONS (3)
  - Bradycardia [Not Recovered/Not Resolved]
  - Drug abuse [Unknown]
  - Wrong technique in product usage process [Unknown]
